FAERS Safety Report 21832168 (Version 2)
Quarter: 2023Q1

REPORT INFORMATION
  Report Type: Spontaneous
  Country: CA (occurrence: CA)
  Receive Date: 20230106
  Receipt Date: 20230216
  Transmission Date: 20230418
  Serious: Yes (Hospitalization, Other)
  Sender: FDA-Public Use
  Company Number: CA-ELI_LILLY_AND_COMPANY-CA202212014673

PATIENT
  Sex: Female

DRUGS (2)
  1. DULOXETINE HYDROCHLORIDE [Suspect]
     Active Substance: DULOXETINE HYDROCHLORIDE
     Indication: Fibromyalgia
     Dosage: 60 MG, DAILY
     Route: 064
  2. DULOXETINE HYDROCHLORIDE [Suspect]
     Active Substance: DULOXETINE HYDROCHLORIDE
     Indication: Fibromyalgia
     Dosage: 60 MG, DAILY
     Route: 064

REACTIONS (7)
  - Hypotonia neonatal [Recovered/Resolved]
  - Dyskinesia [Recovered/Resolved]
  - Premature baby [Recovered/Resolved]
  - Neonatal respiratory depression [Recovered/Resolved]
  - Cerebral haemorrhage [Recovered/Resolved]
  - Intraventricular haemorrhage neonatal [Recovered/Resolved]
  - Foetal exposure during pregnancy [Recovered/Resolved]
